FAERS Safety Report 11083520 (Version 6)
Quarter: 2017Q3

REPORT INFORMATION
  Report Type: Report from Study
  Country: US (occurrence: US)
  Receive Date: 20150501
  Receipt Date: 20170718
  Transmission Date: 20171127
  Serious: Yes (Hospitalization, Other)
  Sender: FDA-Public Use
  Company Number: US-ARIAD PHARMACEUTICALS, INC-2015US004845

PATIENT
  Age: 14 Year
  Sex: Male
  Weight: 80 kg

DRUGS (5)
  1. ICLUSIG [Suspect]
     Active Substance: PONATINIB
     Indication: ACUTE LYMPHOCYTIC LEUKAEMIA
     Dosage: 45 MG, QD
     Route: 048
  2. ICLUSIG [Suspect]
     Active Substance: PONATINIB
     Indication: GASTRIC CANCER
     Dosage: 45 MG, QD
     Route: 048
  3. ICLUSIG [Suspect]
     Active Substance: PONATINIB
     Dosage: 15 MG, QD
     Route: 048
  4. ICLUSIG [Suspect]
     Active Substance: PONATINIB
     Indication: CHRONIC MYELOID LEUKAEMIA
     Dosage: 45 MG, QD
     Route: 048
     Dates: start: 20141226
  5. ICLUSIG [Suspect]
     Active Substance: PONATINIB
     Dosage: 45 MG, QD

REACTIONS (27)
  - Immunodeficiency [Unknown]
  - Haemochromatosis [Unknown]
  - Hepatotoxicity [Unknown]
  - Pancreatitis [Not Recovered/Not Resolved]
  - Anaemia [Unknown]
  - Venoocclusive disease [Unknown]
  - Transplant [Unknown]
  - Acute kidney injury [Not Recovered/Not Resolved]
  - Thrombocytopenia [Unknown]
  - Dermatitis acneiform [Unknown]
  - Vision blurred [Unknown]
  - Blast crisis in myelogenous leukaemia [Unknown]
  - Bone marrow transplant [Not Recovered/Not Resolved]
  - Dry skin [Unknown]
  - Myositis [Not Recovered/Not Resolved]
  - Pneumonia [Unknown]
  - Liver injury [Unknown]
  - Decreased appetite [Unknown]
  - Skin lesion [Unknown]
  - Off label use [Not Recovered/Not Resolved]
  - Secondary immunodeficiency [Not Recovered/Not Resolved]
  - Alanine aminotransferase increased [Not Recovered/Not Resolved]
  - Pruritus [Unknown]
  - Device related infection [Not Recovered/Not Resolved]
  - Gastric cancer recurrent [Unknown]
  - Stem cell transplant [Unknown]
  - Hypoxia [Not Recovered/Not Resolved]

NARRATIVE: CASE EVENT DATE: 20150403
